FAERS Safety Report 7321022-7 (Version None)
Quarter: 2011Q1

REPORT INFORMATION
  Report Type: 
  Country: None (occurrence: None)
  Receive Date: 20110215
  Receipt Date: 20110201
  Transmission Date: 20110831
  Serious: Yes (Hospitalization)
  Sender: FDA-Public Use
  Company Number: 026601

PATIENT
  Age: 63 Year
  Sex: Female

DRUGS (2)
  1. URBANYL [Concomitant]
  2. VIMPAT [Suspect]
     Indication: EPILEPSY
     Dosage: (200 MG BID ORAL)
     Route: 048
     Dates: start: 20091101, end: 20101203

REACTIONS (3)
  - ILL-DEFINED DISORDER [None]
  - FALL [None]
  - PETIT MAL EPILEPSY [None]
